FAERS Safety Report 7214955-3 (Version None)
Quarter: 2011Q1

REPORT INFORMATION
  Report Type: 
  Country: None (occurrence: None)
  Receive Date: 20110107
  Receipt Date: 20100607
  Transmission Date: 20110831
  Serious: No
  Sender: FDA-Public Use
  Company Number: A0863342A

PATIENT
  Age: 56 Year
  Sex: Female

DRUGS (4)
  1. TRICOR [Concomitant]
  2. GLYBURIDE [Concomitant]
  3. LOVAZA [Suspect]
     Dosage: 2CAP SINGLE DOSE
     Route: 048
     Dates: start: 20100604, end: 20100604
  4. LIPITOR [Concomitant]

REACTIONS (3)
  - ABDOMINAL PAIN UPPER [None]
  - ABDOMINAL DISTENSION [None]
  - DIARRHOEA [None]
